FAERS Safety Report 26103901 (Version 1)
Quarter: 2025Q4

REPORT INFORMATION
  Report Type: Spontaneous
  Country: CN (occurrence: CN)
  Receive Date: 20251129
  Receipt Date: 20251129
  Transmission Date: 20260117
  Serious: Yes (Other)
  Sender: ALEXION PHARMACEUTICALS
  Company Number: CN-ASTRAZENECA-202511CHN025685CN

PATIENT
  Age: 48 Year
  Sex: Female

DRUGS (1)
  1. DAPAGLIFLOZIN [Suspect]
     Active Substance: DAPAGLIFLOZIN
     Indication: Diabetes mellitus
     Dosage: 10.000 MILLIGRAM, QD
     Dates: start: 20250318, end: 20251119

REACTIONS (4)
  - Vaginal infection [Unknown]
  - Vulvovaginal pruritus [Unknown]
  - Vulvovaginal candidiasis [Unknown]
  - Vulvitis [Unknown]

NARRATIVE: CASE EVENT DATE: 20251115
